FAERS Safety Report 13743704 (Version 3)
Quarter: 2017Q4

REPORT INFORMATION
  Report Type: Report from Study
  Country: US (occurrence: BR)
  Receive Date: 20170711
  Receipt Date: 20171017
  Transmission Date: 20180320
  Serious: Yes (Life-Threatening, Other)
  Sender: FDA-Public Use
  Company Number: US-SUNOVION-2017SUN003028

PATIENT
  Sex: Female

DRUGS (12)
  1. ACETYLCYSTEINE. [Suspect]
     Active Substance: ACETYLCYSTEINE
     Indication: PRODUCT USED FOR UNKNOWN INDICATION
     Dosage: UNK
     Route: 065
  2. INDACATEROL AND GLYCOPYRROLATE [Suspect]
     Active Substance: GLYCOPYRROLATE\INDACATEROL MALEATE
     Indication: CHRONIC OBSTRUCTIVE PULMONARY DISEASE
     Dosage: 1 DF (110/50UG), QD
     Route: 055
     Dates: start: 201704
  3. INDACATEROL AND GLYCOPYRROLATE [Suspect]
     Active Substance: GLYCOPYRROLATE\INDACATEROL MALEATE
     Indication: EMPHYSEMA
  4. PRADAXA [Concomitant]
     Active Substance: DABIGATRAN ETEXILATE MESYLATE
     Dosage: 150 MG, UNK
  5. CLEXANE [Concomitant]
     Active Substance: ENOXAPARIN SODIUM
  6. SPIRIVA [Concomitant]
     Active Substance: TIOTROPIUM BROMIDE MONOHYDRATE
     Dosage: UNK
  7. CORTICOID [Concomitant]
     Active Substance: UNSPECIFIED INGREDIENT
  8. INDACATEROL AND GLYCOPYRROLATE [Suspect]
     Active Substance: GLYCOPYRROLATE\INDACATEROL MALEATE
     Indication: ASTHMA
  9. DUOVENT [Suspect]
     Active Substance: FENOTEROL HYDROBROMIDE
     Indication: PRODUCT USED FOR UNKNOWN INDICATION
     Dosage: UNK
     Route: 065
  10. SERETIDE [Concomitant]
     Active Substance: FLUTICASONE PROPIONATE\SALMETEROL XINAFOATE
  11. INDACATEROL AND GLYCOPYRROLATE [Suspect]
     Active Substance: GLYCOPYRROLATE\INDACATEROL MALEATE
     Indication: BRONCHOSPASM
  12. OXYGEN. [Concomitant]
     Active Substance: OXYGEN

REACTIONS (13)
  - Poisoning [Unknown]
  - Swelling [Unknown]
  - Asthenia [Unknown]
  - Fatigue [Unknown]
  - Cough [Unknown]
  - Apparent death [Unknown]
  - Constricted affect [Unknown]
  - Pyrexia [Unknown]
  - Chest discomfort [Unknown]
  - Productive cough [Unknown]
  - Body height decreased [Unknown]
  - Wrong drug administered [Unknown]
  - Mobility decreased [Unknown]
